FAERS Safety Report 9161217 (Version 3)
Quarter: 2014Q1

REPORT INFORMATION
  Report Type: Spontaneous
  Country: GB (occurrence: GB)
  Receive Date: 20130313
  Receipt Date: 20140126
  Transmission Date: 20141002
  Serious: Yes (Hospitalization)
  Sender: FDA-Public Use
  Company Number: GB-009507513-1303GBR004296

PATIENT
  Age: 66 Year
  Sex: Female

DRUGS (10)
  1. DEXAMETHASONE TABLETS BP 2.0MG [Suspect]
     Indication: PLASMA CELL MYELOMA
     Dosage: 20 MG, UNK
     Route: 048
     Dates: start: 20130114, end: 2013
  2. DOXORUBICIN [Suspect]
     Indication: PLASMA CELL MYELOMA
     Dosage: 16 MG, QD
     Route: 042
     Dates: start: 20130114, end: 2013
  3. VELCADE [Suspect]
     Indication: PLASMA CELL MYELOMA
     Dosage: 1.3 MG/M2, BIW
     Route: 042
     Dates: start: 20130114, end: 2013
  4. ADCAL (CALCIUM CARBONATE) [Concomitant]
     Dosage: UNK
     Dates: start: 20130204, end: 20130204
  5. ALLOPURINOL [Concomitant]
  6. ENOXAPARIN SODIUM [Concomitant]
     Route: 058
  7. OMEPRAZOLE [Concomitant]
  8. ONDANSETRON [Concomitant]
     Dosage: 16 MG, BID
     Route: 048
     Dates: start: 20130202
  9. PHOSPHATE-SANDOZ [Concomitant]
     Dosage: UNK
     Dates: start: 20130203
  10. SANDO-K [Concomitant]
     Dosage: UNK
     Dates: start: 20130204

REACTIONS (2)
  - Lower respiratory tract infection [Recovered/Resolved]
  - Pyrexia [Recovered/Resolved]
